FAERS Safety Report 15577492 (Version 11)
Quarter: 2023Q2

REPORT INFORMATION
  Report Type: Report from Study
  Country: JP (occurrence: JP)
  Receive Date: 20181102
  Receipt Date: 20230620
  Transmission Date: 20230721
  Serious: Yes (Hospitalization)
  Sender: FDA-Public Use
  Company Number: JP-ABBVIE-18S-087-2541504-00

PATIENT
  Age: 49 Year
  Sex: Male
  Weight: 106.6 kg

DRUGS (9)
  1. CARBIDOPA\LEVODOPA [Suspect]
     Active Substance: CARBIDOPA\LEVODOPA
     Indication: Parkinson^s disease
     Route: 050
  2. CARBIDOPA\LEVODOPA [Suspect]
     Active Substance: CARBIDOPA\LEVODOPA
     Dosage: MD: 12 ML, CD: 4.4 ML/HR X 15 HR, ED: 2.0 ML/UNIT X 2
     Route: 050
     Dates: start: 20170309, end: 20170316
  3. CARBIDOPA\LEVODOPA [Suspect]
     Active Substance: CARBIDOPA\LEVODOPA
     Dosage: MD: 12 ML, CD: 3.8 ML/HR X 15 HR, ED: 1.5 ML/UNIT X 2
     Route: 050
     Dates: start: 20170316, end: 20170517
  4. CARBIDOPA\LEVODOPA [Suspect]
     Active Substance: CARBIDOPA\LEVODOPA
     Dosage: MD: 12 ML, CD: 3.0 ML/HR X 15 HR, ED: 1.3 ML/UNIT X 2
     Route: 050
     Dates: start: 20170517
  5. CARBIDOPA\LEVODOPA [Suspect]
     Active Substance: CARBIDOPA\LEVODOPA
     Dosage: THE ADMINISTRATION RATE WAS INCREASED FROM 3.1 TO 3.3.
     Route: 050
  6. CARBIDOPA\LEVODOPA [Concomitant]
     Active Substance: CARBIDOPA\LEVODOPA
     Indication: Parkinson^s disease
     Route: 048
     Dates: start: 20170315
  7. PRAMIPEXOLE DIHYDROCHLORIDE [Concomitant]
     Active Substance: PRAMIPEXOLE DIHYDROCHLORIDE
     Indication: Parkinson^s disease
     Dosage: TIME INTERVAL: CYCLICAL
     Route: 048
     Dates: start: 20170314, end: 20170328
  8. PRAMIPEXOLE DIHYDROCHLORIDE [Concomitant]
     Active Substance: PRAMIPEXOLE DIHYDROCHLORIDE
     Indication: Parkinson^s disease
     Dates: start: 20170329
  9. SELEGILINE HYDROCHLORIDE [Concomitant]
     Active Substance: SELEGILINE HYDROCHLORIDE
     Indication: Parkinson^s disease
     Route: 048
     Dates: start: 20170316

REACTIONS (13)
  - Medical device site cellulitis [Unknown]
  - Spinal cord infection [Unknown]
  - Duodenal ulcer [Recovered/Resolved]
  - Dyskinesia [Unknown]
  - Stoma site pain [Unknown]
  - Muscular weakness [Unknown]
  - Dyskinesia [Unknown]
  - Secretion discharge [Not Recovered/Not Resolved]
  - Gastrointestinal stoma complication [Unknown]
  - Device issue [Recovered/Resolved]
  - Stoma site discharge [Unknown]
  - On and off phenomenon [Unknown]
  - Stoma site inflammation [Recovering/Resolving]

NARRATIVE: CASE EVENT DATE: 20171124
